FAERS Safety Report 15017999 (Version 1)
Quarter: 2018Q2

REPORT INFORMATION
  Report Type: Spontaneous
  Country: DE (occurrence: DE)
  Receive Date: 20180615
  Receipt Date: 20180615
  Transmission Date: 20180711
  Serious: Yes (Hospitalization)
  Sender: FDA-Public Use
  Company Number: DE-TEVA-2018-DE-907385

PATIENT
  Age: 47 Year
  Sex: Female

DRUGS (5)
  1. PIPAMPERONE [Suspect]
     Active Substance: PIPAMPERONE
     Dosage: 160 MILLIGRAM DAILY;
     Route: 065
  2. PANTOPRAZOLE [Concomitant]
     Active Substance: PANTOPRAZOLE
     Dosage: 40 MILLIGRAM DAILY;
     Route: 065
  3. QUETIAPINE. [Suspect]
     Active Substance: QUETIAPINE
     Dosage: 200 MILLIGRAM DAILY;
     Route: 065
  4. METOPROLOL. [Concomitant]
     Active Substance: METOPROLOL
     Dosage: 23.75 MILLIGRAM DAILY;
     Route: 065
  5. LEVOTHYROXINE. [Concomitant]
     Active Substance: LEVOTHYROXINE
     Dosage: 175 MICROGRAM DAILY;
     Route: 065

REACTIONS (4)
  - Hyponatraemia [Unknown]
  - Seizure [Unknown]
  - Brain oedema [Unknown]
  - Drug prescribing error [Unknown]
